FAERS Safety Report 14092861 (Version 1)
Quarter: 2017Q4

REPORT INFORMATION
  Report Type: Spontaneous
  Country: AU (occurrence: AU)
  Receive Date: 20171016
  Receipt Date: 20171016
  Transmission Date: 20180321
  Serious: Yes (Other)
  Sender: FDA-Public Use
  Company Number: AU-AMGEN-AUSSP2017155243

PATIENT
  Age: 63 Year
  Sex: Male

DRUGS (6)
  1. SODIBIC [Concomitant]
  2. ARANESP [Suspect]
     Active Substance: DARBEPOETIN ALFA
     Indication: NEPHROGENIC ANAEMIA
     Dosage: 50 MUG, UNK
     Route: 065
  3. DIAMICRON [Concomitant]
     Active Substance: GLICLAZIDE
  4. ZYTIGA [Concomitant]
     Active Substance: ABIRATERONE ACETATE
  5. CALTRATE [Concomitant]
     Active Substance: CALCIUM CARBONATE
  6. PREDNISOLONE. [Concomitant]
     Active Substance: PREDNISOLONE

REACTIONS (3)
  - Thrombosis [Unknown]
  - Product storage error [Unknown]
  - Infection [Unknown]
